FAERS Safety Report 26092972 (Version 2)
Quarter: 2025Q4

REPORT INFORMATION
  Report Type: Report from Study
  Country: US (occurrence: US)
  Receive Date: 20251126
  Receipt Date: 20251231
  Transmission Date: 20260118
  Serious: No
  Sender: PFIZER
  Company Number: US-PFIZER INC-202500233206

PATIENT
  Age: 39 Year
  Sex: Male

DRUGS (1)
  1. VELSIPITY [Suspect]
     Active Substance: ETRASIMOD ARGININE
     Indication: Colitis ulcerative
     Dosage: 2 MG, DAILY
     Route: 048

REACTIONS (3)
  - Malaise [Unknown]
  - Dizziness [Unknown]
  - Condition aggravated [Unknown]
